FAERS Safety Report 9738318 (Version 1)
Quarter: 2013Q4

REPORT INFORMATION
  Report Type: Spontaneous
  Country: US (occurrence: US)
  Receive Date: 20131208
  Receipt Date: 20131208
  Transmission Date: 20140711
  Serious: No
  Sender: FDA-Public Use
  Company Number: US-SANOFI-AVENTIS-2013SA084920

PATIENT
  Age: 46 Year
  Sex: Female

DRUGS (1)
  1. FERRLECIT [Suspect]
     Indication: ANAEMIA
     Route: 065

REACTIONS (2)
  - Local swelling [Unknown]
  - Injection site discolouration [Unknown]
